FAERS Safety Report 6828411-5 (Version None)
Quarter: 2010Q3

REPORT INFORMATION
  Report Type: 
  Country: None (occurrence: None)
  Receive Date: 20100709
  Receipt Date: 20070208
  Transmission Date: 20110219
  Serious: No
  Sender: FDA-Public Use
  Company Number: US-PFIZER INC-2007011046

PATIENT
  Sex: Female
  Weight: 68.04 kg

DRUGS (7)
  1. CHANTIX [Suspect]
     Indication: SMOKING CESSATION THERAPY
     Dates: start: 20070101
  2. DIOVAN HCT [Concomitant]
  3. NORVASC [Concomitant]
     Indication: HYPERTENSION
  4. LEXAPRO [Concomitant]
  5. KLONOPIN [Concomitant]
  6. XANAX [Concomitant]
  7. ACTONEL [Concomitant]
     Indication: OSTEOPOROSIS

REACTIONS (1)
  - DYSPEPSIA [None]
